FAERS Safety Report 5730021-8 (Version None)
Quarter: 2008Q2

REPORT INFORMATION
  Report Type: 
  Country: None (occurrence: None)
  Receive Date: 20080507
  Receipt Date: 20080428
  Transmission Date: 20081010
  Serious: Yes (Hospitalization)
  Sender: FDA-Public Use
  Company Number: US-JNJFOC-20080500110

PATIENT
  Sex: Female
  Weight: 63.5 kg

DRUGS (5)
  1. DURAGESIC-100 [Suspect]
     Indication: PAIN
     Route: 062
  2. ZOLOFT [Concomitant]
     Indication: DEPRESSION
     Route: 048
  3. LORTAB [Concomitant]
     Indication: PAIN
     Route: 048
  4. FERREX [Concomitant]
     Indication: BLOOD IRON
     Route: 048
  5. CELEXA [Concomitant]
     Indication: DEPRESSION
     Route: 048

REACTIONS (4)
  - DEPRESSION [None]
  - EXOSTOSIS [None]
  - HEADACHE [None]
  - WEIGHT INCREASED [None]
